FAERS Safety Report 24795704 (Version 1)
Quarter: 2025Q1

REPORT INFORMATION
  Report Type: Spontaneous
  Country: US (occurrence: US)
  Receive Date: 20250101
  Receipt Date: 20250101
  Transmission Date: 20250408
  Serious: Yes (Hospitalization, Other)
  Sender: GLAXOSMITHKLINE
  Company Number: US-GSK-US2024GSK164965

PATIENT

DRUGS (3)
  1. SUMATRIPTAN SUCCINATE [Suspect]
     Active Substance: SUMATRIPTAN SUCCINATE
     Indication: Migraine
  2. COBIMETINIB [Concomitant]
     Active Substance: COBIMETINIB
     Indication: Rosai-Dorfman syndrome
  3. COBIMETINIB [Concomitant]
     Active Substance: COBIMETINIB
     Indication: Leukocytosis

REACTIONS (3)
  - Colitis ischaemic [Unknown]
  - Intestinal congestion [Unknown]
  - Large intestinal haemorrhage [Unknown]
